FAERS Safety Report 20544301 (Version 1)
Quarter: 2022Q1

REPORT INFORMATION
  Report Type: Spontaneous
  Country: CN (occurrence: CN)
  Receive Date: 20220303
  Receipt Date: 20220303
  Transmission Date: 20220423
  Serious: Yes (Other)
  Sender: FDA-Public Use
  Company Number: CN-ABBVIE-22K-035-4297506-00

PATIENT
  Age: 23 Year
  Sex: Male
  Weight: 66 kg

DRUGS (3)
  1. VALPROATE SODIUM [Suspect]
     Active Substance: VALPROATE SODIUM
     Indication: Mood altered
     Route: 048
     Dates: start: 20190816, end: 20190817
  2. OLANZAPINE [Concomitant]
     Active Substance: OLANZAPINE
     Indication: Product used for unknown indication
     Dates: start: 20190806, end: 20190810
  3. OLANZAPINE [Concomitant]
     Active Substance: OLANZAPINE
     Dates: start: 20190810, end: 20190817

REACTIONS (1)
  - Hepatic function abnormal [Unknown]
